FAERS Safety Report 10020934 (Version 3)
Quarter: 2016Q1

REPORT INFORMATION
  Report Type: Report from Study
  Country: US (occurrence: US)
  Receive Date: 20140319
  Receipt Date: 20160310
  Transmission Date: 20160525
  Serious: Yes (Hospitalization, Other)
  Sender: FDA-Public Use
  Company Number: US-BRISTOL-MYERS SQUIBB COMPANY-20417465

PATIENT
  Age: 64 Year
  Sex: Male
  Weight: 85 kg

DRUGS (4)
  1. INTERFERON ALFA NOS [Suspect]
     Active Substance: INTERFERON ALFA-2A OR INTERFERON ALFA-2B
     Dosage: 1 DF, UNK
     Route: 042
     Dates: start: 20140203
  2. IPILIMUMAB [Suspect]
     Active Substance: IPILIMUMAB
     Dosage: 3 MG/KG, UNK
     Route: 042
     Dates: start: 20140203
  3. INTERFERON ALFA NOS [Suspect]
     Active Substance: INTERFERON ALFA-2A OR INTERFERON ALFA-2B
     Indication: MALIGNANT MELANOMA
     Dosage: 1 DF, UNK
     Route: 042
     Dates: start: 20140203
  4. IPILIMUMAB [Suspect]
     Active Substance: IPILIMUMAB
     Indication: MALIGNANT MELANOMA
     Dosage: 3 MG/KG, Q3WK
     Route: 042
     Dates: start: 20140203

REACTIONS (5)
  - Dehydration [Not Recovered/Not Resolved]
  - Nausea [Not Recovered/Not Resolved]
  - Tumour pain [Not Recovered/Not Resolved]
  - Fatigue [Not Recovered/Not Resolved]
  - Retching [Not Recovered/Not Resolved]

NARRATIVE: CASE EVENT DATE: 20140303
